FAERS Safety Report 9022591 (Version 1)
Quarter: 2013Q1

REPORT INFORMATION
  Report Type: Spontaneous
  Country: US (occurrence: US)
  Receive Date: 20130118
  Receipt Date: 20130118
  Transmission Date: 20140127
  Serious: No
  Sender: FDA-Public Use
  Company Number: US-GLAXOSMITHKLINE-A0992932A

PATIENT
  Age: 68 Year
  Sex: Female
  Weight: 87.7 kg

DRUGS (10)
  1. PROMACTA [Suspect]
     Indication: PRODUCT USED FOR UNKNOWN INDICATION
     Dosage: 50MG PER DAY
     Route: 048
  2. SIMVASTATIN [Concomitant]
     Route: 065
  3. VITAMIN C [Concomitant]
     Route: 065
  4. VITAMIN D [Concomitant]
     Route: 065
  5. ASA [Concomitant]
     Route: 065
  6. XANAX [Concomitant]
     Route: 065
  7. METHOCARBAMOL [Concomitant]
     Route: 065
  8. DAYPRO [Concomitant]
     Route: 065
  9. CENTRUM [Concomitant]
     Route: 065
  10. QVAR [Concomitant]
     Route: 065

REACTIONS (2)
  - Fatigue [Unknown]
  - Muscular weakness [Unknown]
